FAERS Safety Report 8583063-1 (Version None)
Quarter: 2012Q2

REPORT INFORMATION
  Report Type: 
  Country: None (occurrence: None)
  Receive Date: 20120423
  Receipt Date: 20091005
  Transmission Date: 20120825
  Serious: Yes (Hospitalization)
  Sender: FDA-Public Use
  Company Number: PHEH2009US13075

PATIENT
  Sex: Male

DRUGS (1)
  1. EXJADE [Suspect]
     Dosage: 2000 UNK, BID, ORAL
     Route: 048
     Dates: start: 20071127, end: 20090917

REACTIONS (1)
  - WHITE BLOOD CELL COUNT DECREASED [None]
